FAERS Safety Report 19777981 (Version 1)
Quarter: 2021Q3

REPORT INFORMATION
  Report Type: Spontaneous
  Country: US (occurrence: US)
  Receive Date: 20210830
  Receipt Date: 20210830
  Transmission Date: 20211014
  Serious: No
  Sender: FDA-Public Use
  Company Number: None

PATIENT
  Age: 55 Year
  Sex: Male

DRUGS (1)
  1. PROMACTA [Suspect]
     Active Substance: ELTROMBOPAG OLAMINE
     Route: 048
     Dates: start: 20200514

REACTIONS (6)
  - Cellulitis [None]
  - Product quality issue [None]
  - Erythema [None]
  - Hypoacusis [None]
  - Therapy interrupted [None]
  - Peripheral swelling [None]

NARRATIVE: CASE EVENT DATE: 20210701
